FAERS Safety Report 6422105-6 (Version None)
Quarter: 2009Q4

REPORT INFORMATION
  Report Type: 
  Country: None (occurrence: None)
  Receive Date: 20091029
  Receipt Date: 20091029
  Transmission Date: 20100525
  Serious: Yes (Life-Threatening, Hospitalization, Other)
  Sender: FDA-Public Use
  Company Number: None

PATIENT
  Age: 58 Year
  Sex: Female
  Weight: 63.5036 kg

DRUGS (1)
  1. PRISTIQ [Suspect]

REACTIONS (7)
  - DELUSION [None]
  - DEPRESSION [None]
  - FEAR [None]
  - PSYCHOTIC DISORDER [None]
  - SUICIDAL IDEATION [None]
  - SUICIDE ATTEMPT [None]
  - THINKING ABNORMAL [None]
